FAERS Safety Report 6950125-1 (Version None)
Quarter: 2010Q3

REPORT INFORMATION
  Report Type: 
  Country: None (occurrence: None)
  Receive Date: 20100828
  Receipt Date: 20100210
  Transmission Date: 20110219
  Serious: No
  Sender: FDA-Public Use
  Company Number: US-ABBOTT-10P-163-0620097-00

PATIENT
  Sex: Male
  Weight: 102.15 kg

DRUGS (7)
  1. NIASPAN [Suspect]
     Indication: BLOOD CHOLESTEROL INCREASED
     Dosage: AT BEDTIME
     Dates: start: 20090601
  2. NIASPAN [Suspect]
  3. CARDURA [Concomitant]
     Indication: BENIGN PROSTATIC HYPERPLASIA
  4. ASPIRIN [Concomitant]
     Indication: PRODUCT USED FOR UNKNOWN INDICATION
  5. MVT [Concomitant]
     Indication: PRODUCT USED FOR UNKNOWN INDICATION
  6. OSTEOBIOFLEX [Concomitant]
     Indication: PRODUCT USED FOR UNKNOWN INDICATION
  7. FISH OIL [Concomitant]
     Indication: PRODUCT USED FOR UNKNOWN INDICATION

REACTIONS (4)
  - BLOOD PRESSURE DECREASED [None]
  - FLUSHING [None]
  - PARAESTHESIA [None]
  - PRURITUS [None]
